FAERS Safety Report 5147753-5 (Version None)
Quarter: 2006Q4

REPORT INFORMATION
  Report Type: 
  Country: None (occurrence: None)
  Receive Date: 20061110
  Receipt Date: 20061019
  Transmission Date: 20070319
  Serious: Yes (Hospitalization)
  Sender: FDA-Public Use
  Company Number: US-AMGEN-US197381

PATIENT
  Sex: Female

DRUGS (8)
  1. ENBREL [Suspect]
     Indication: RHEUMATOID ARTHRITIS
     Route: 058
     Dates: start: 20060818, end: 20061009
  2. PREDNISONE TAB [Concomitant]
     Dates: start: 20061017
  3. LEVAQUIN [Concomitant]
     Dates: start: 20060830, end: 20060907
  4. CELEBREX [Concomitant]
     Route: 048
  5. AMBIEN [Concomitant]
  6. NEXIUM [Concomitant]
  7. VITAMIN CAP [Concomitant]
  8. VOLTAREN [Concomitant]
     Route: 054

REACTIONS (4)
  - CONDITION AGGRAVATED [None]
  - ORAL CANDIDIASIS [None]
  - RHEUMATOID ARTHRITIS [None]
  - WHITE BLOOD CELL COUNT INCREASED [None]
